FAERS Safety Report 8140552-1 (Version None)
Quarter: 2012Q1

REPORT INFORMATION
  Report Type: 
  Country: None (occurrence: None)
  Receive Date: 20120216
  Receipt Date: 20120213
  Transmission Date: 20120608
  Serious: Yes (Hospitalization)
  Sender: FDA-Public Use
  Company Number: ES-PFIZER INC-2012011468

PATIENT
  Sex: Female

DRUGS (1)
  1. TOVIAZ [Suspect]
     Dosage: 4 MG, UNK
     Dates: start: 20111003, end: 20111201

REACTIONS (6)
  - VISION BLURRED [None]
  - DRY EYE [None]
  - ANOSMIA [None]
  - DIPLOPIA [None]
  - AGEUSIA [None]
  - OCULAR MYASTHENIA [None]
